FAERS Safety Report 5888573-3 (Version None)
Quarter: 2008Q3

REPORT INFORMATION
  Report Type: 
  Country: None (occurrence: None)
  Receive Date: 20080916
  Receipt Date: 20080903
  Transmission Date: 20090109
  Serious: Yes (Hospitalization)
  Sender: FDA-Public Use
  Company Number: 2008SP013927

PATIENT
  Age: 16 Year
  Sex: Female

DRUGS (3)
  1. BETAMETHASONE [Suspect]
     Indication: DRUG ERUPTION
     Dosage: 2 MG; QD; PO
     Route: 048
  2. LOXONIN (LOXOPROFEN) [Suspect]
     Indication: DRUG USE FOR UNKNOWN INDICATION
     Dosage: ; PO
     Route: 048
     Dates: start: 20060101
  3. FAMOTIDINE [Concomitant]

REACTIONS (1)
  - DRUG ERUPTION [None]
